FAERS Safety Report 4307114-5 (Version None)
Quarter: 2004Q1

REPORT INFORMATION
  Report Type: 
  Country: None (occurrence: None)
  Receive Date: 20040226
  Receipt Date: 20040226
  Transmission Date: 20041129
  Serious: No
  Sender: FDA-Public Use
  Company Number: None

PATIENT
  Age: 49 Year
  Sex: Female
  Weight: 92.9874 kg

DRUGS (3)
  1. GLIPIZIDE [Suspect]
     Indication: DIABETES MELLITUS
     Dosage: 1 TABLET BY MOUTH DAILY
     Route: 048
     Dates: start: 20040217, end: 20040219
  2. PRINIVIL [Concomitant]
  3. SYNTHROID [Concomitant]

REACTIONS (5)
  - DIZZINESS [None]
  - DRY MOUTH [None]
  - IMPAIRED DRIVING ABILITY [None]
  - IRRITABILITY [None]
  - MOOD ALTERED [None]
